FAERS Safety Report 6177669-7 (Version None)
Quarter: 2009Q2

REPORT INFORMATION
  Report Type: 
  Country: None (occurrence: None)
  Receive Date: 20090504
  Receipt Date: 20090428
  Transmission Date: 20091009
  Serious: Yes (Life-Threatening)
  Sender: FDA-Public Use
  Company Number: PHHO2009DE04073

PATIENT
  Sex: Male
  Weight: 75 kg

DRUGS (15)
  1. RAD 666 RAD+TAB [Suspect]
     Indication: METASTATIC RENAL CELL CARCINOMA
     Dosage: 10 MG/DAY
     Route: 048
     Dates: start: 20090217, end: 20090324
  2. RAD 666 RAD+TAB [Suspect]
     Dosage: 10 MG/DAY
     Route: 048
     Dates: end: 20090422
  3. RAMIPRIL [Suspect]
     Dosage: 5 MG, BID
  4. AMLODIPINE [Concomitant]
     Dosage: 5 MG, QD
  5. LEVOTHYROXINE SODIUM [Concomitant]
     Dosage: 100 UG, QD
  6. TAMSULOSIN HCL [Concomitant]
     Dosage: 0.4 MG, QD
  7. FUROSEMIDE [Concomitant]
     Dosage: 40 MG, QD
  8. SEVREDOL [Concomitant]
     Dosage: 20 MG, TID
  9. FENTANYL [Concomitant]
     Dosage: 75 UG/HR, UNK
  10. LYRICA [Concomitant]
     Dosage: 25 MG, BID
  11. HALDOL [Concomitant]
     Dosage: 10 DF, TID
  12. OMEP [Concomitant]
     Dosage: 20 MG, QD
  13. HYDROMORPHONE HYDROCHLORIDE [Concomitant]
     Dosage: 32 MG, QD
  14. PREDNISONE [Concomitant]
     Dosage: 25 MG, QD
  15. PALLADONE [Concomitant]
     Dosage: 2.6 MG, QID

REACTIONS (6)
  - ANGIOEDEMA [None]
  - DRUG INTERACTION [None]
  - EATING DISORDER [None]
  - OEDEMA MOUTH [None]
  - SPEECH DISORDER [None]
  - SWOLLEN TONGUE [None]
